FAERS Safety Report 15516752 (Version 1)
Quarter: 2018Q4

REPORT INFORMATION
  Report Type: Spontaneous
  Country: US (occurrence: US)
  Receive Date: 20181011
  Receipt Date: 20181011
  Transmission Date: 20190205
  Serious: Yes (Hospitalization)
  Sender: FDA-Public Use
  Company Number: None

PATIENT
  Age: 77 Year
  Sex: Male
  Weight: 115.4 kg

DRUGS (1)
  1. 5-FLUOROURACIL (5-FU) [Suspect]
     Active Substance: FLUOROURACIL
     Dosage: ?          OTHER DOSE:5 FU;?
     Dates: end: 20180725

REACTIONS (4)
  - Postoperative wound infection [None]
  - Therapy change [None]
  - Drug ineffective [None]
  - Dehydration [None]

NARRATIVE: CASE EVENT DATE: 20181003
